FAERS Safety Report 9477776 (Version 2)
Quarter: 2013Q3

REPORT INFORMATION
  Report Type: Spontaneous
  Country: US (occurrence: US)
  Receive Date: 20130827
  Receipt Date: 20130828
  Transmission Date: 20140515
  Serious: No
  Sender: FDA-Public Use
  Company Number: US-009507513-1308USA011028

PATIENT
  Sex: Female

DRUGS (2)
  1. PROVENTIL [Suspect]
     Dosage: 2 PUFFS ORAL INHALATION, Q4H
     Route: 055
  2. PREDNISONE [Concomitant]

REACTIONS (3)
  - Chest discomfort [Unknown]
  - Drug dose omission [Unknown]
  - Product quality issue [Unknown]
